FAERS Safety Report 5394836-0 (Version None)
Quarter: 2007Q3

REPORT INFORMATION
  Report Type: 
  Country: None (occurrence: None)
  Receive Date: 20070720
  Receipt Date: 20070710
  Transmission Date: 20080115
  Serious: Yes (Hospitalization)
  Sender: FDA-Public Use
  Company Number: 2007BI004266

PATIENT
  Age: 56 Year
  Sex: Female

DRUGS (1)
  1. NATALIZUMAB [Suspect]
     Indication: MULTIPLE SCLEROSIS
     Dosage: 300 MG;QM;IV
     Route: 042
     Dates: start: 20060912

REACTIONS (8)
  - BACTERIAL INFECTION [None]
  - CORNEAL DISORDER [None]
  - DACRYOSTENOSIS ACQUIRED [None]
  - DEHYDRATION [None]
  - EYE BURNS [None]
  - INFLUENZA [None]
  - PAROTITIS [None]
  - SINUSITIS [None]
